FAERS Safety Report 15980601 (Version 3)
Quarter: 2019Q2

REPORT INFORMATION
  Report Type: Not Available
  Country: US (occurrence: US)
  Receive Date: 20190219
  Receipt Date: 20190408
  Transmission Date: 20190711
  Serious: No
  Sender: FDA-Public Use
  Company Number: US-NEUROCRINE BIOSCIENCES INC.-2019NBI00385

PATIENT
  Sex: Female

DRUGS (7)
  1. LOTEMAX [Concomitant]
     Active Substance: LOTEPREDNOL ETABONATE
     Indication: EYE OPERATION
  2. XANAX [Concomitant]
     Active Substance: ALPRAZOLAM
     Dosage: TAKE 1/2 TWICE A DAY WITH ONE OF THE HALVES TAKEN AT 11 AM.1 TIMES 3 DAILY OR AS NEEDED, SOMETIMES T
  3. LOSARTAN. [Concomitant]
     Active Substance: LOSARTAN
     Dosage: 100/25 MG
  4. INGREZZA [Suspect]
     Active Substance: VALBENAZINE
     Indication: TARDIVE DYSKINESIA
     Route: 048
     Dates: start: 20181026
  5. LATANOPROST. [Concomitant]
     Active Substance: LATANOPROST
     Dosage: 1 DROP IN BOTH EYES AT NIGHT
     Route: 047
  6. AMLODIPINE BESYLATE. [Concomitant]
     Active Substance: AMLODIPINE BESYLATE
  7. MARIJUANA [Concomitant]
     Active Substance: CANNABIS SATIVA SUBSP. INDICA TOP
     Dosage: PIECE OF EDIBLE MARIJUANA AS BIG AS A KRAFT CARAMEL OR LITTLE CIRCLES MINTS THAT ARE RED AND WHITE,

REACTIONS (2)
  - Dry mouth [Recovered/Resolved]
  - Nightmare [Recovering/Resolving]
